FAERS Safety Report 9948646 (Version 1)
Quarter: 2014Q1

REPORT INFORMATION
  Report Type: Spontaneous
  Country: IN (occurrence: IN)
  Receive Date: 20140304
  Receipt Date: 20140304
  Transmission Date: 20141002
  Serious: Yes (Other)
  Sender: FDA-Public Use
  Company Number: IN-009507513-1403IND000369

PATIENT
  Age: 61 Year
  Sex: Male

DRUGS (1)
  1. JANUMET [Suspect]
     Dosage: 2/DAY
     Route: 048
     Dates: start: 201312, end: 20140225

REACTIONS (4)
  - Blood glucose abnormal [Not Recovered/Not Resolved]
  - Hyperchlorhydria [Not Recovered/Not Resolved]
  - Expired drug administered [Unknown]
  - Product tampering [Unknown]
